FAERS Safety Report 5370631-3 (Version None)
Quarter: 2007Q2

REPORT INFORMATION
  Report Type: 
  Country: None (occurrence: None)
  Receive Date: 20070622
  Receipt Date: 20070606
  Transmission Date: 20071010
  Serious: Yes (Life-Threatening, Hospitalization)
  Sender: FDA-Public Use
  Company Number: 2007EU000840

PATIENT
  Age: 2 Year
  Sex: Female
  Weight: 12 kg

DRUGS (3)
  1. TACROLIMUS [Suspect]
     Indication: PSORIASIS
     Dosage: 0.03%, UID/QD, TOPICAL
     Route: 061
     Dates: start: 20061221
  2. DERMOL (ISOPROLOL MYRISTATE, PARAFFIN, LIQUID, CHLORHEXADINE HYDROCHLO [Concomitant]
  3. CETRABEN (LIGHT LIQUID PARAFFIN) [Concomitant]

REACTIONS (3)
  - PNEUMONIA PARAINFLUENZAE VIRAL [None]
  - SEPSIS [None]
  - VARICELLA [None]
